FAERS Safety Report 19610935 (Version 1)
Quarter: 2021Q3

REPORT INFORMATION
  Report Type: Spontaneous
  Country: US (occurrence: US)
  Receive Date: 20210726
  Receipt Date: 20210726
  Transmission Date: 20211014
  Serious: No
  Sender: FDA-Public Use
  Company Number: US-NEXGEN PHARMA, INC.-2114277

PATIENT
  Age: 27 Year
  Sex: Female

DRUGS (1)
  1. CHENODAL [Suspect]
     Active Substance: CHENODIOL
     Indication: DIARRHOEA NEONATAL
     Route: 048
     Dates: start: 20170220

REACTIONS (2)
  - Haemoglobin abnormal [Unknown]
  - Blood pressure increased [Unknown]
